FAERS Safety Report 8064656 (Version 2)
Quarter: 2012Q4

REPORT INFORMATION
  Report Type: 
  Country: US (occurrence: US)
  Receive Date: 20110802
  Receipt Date: 20121018
  Transmission Date: 20130627
  Serious: Yes (Other)
  Sender: FDA-Public Use
  Company Number: US-ROCHE-752088

PATIENT
  Age: 31 None
  Sex: Female
  Weight: 47.6 kg

DRUGS (4)
  1. ACCUTANE [Suspect]
     Indication: ACNE
     Route: 065
     Dates: start: 19980101, end: 19990101
  2. ACCUTANE [Suspect]
     Route: 065
     Dates: start: 20030109, end: 20030209
  3. LORTAB [Concomitant]
  4. ALPRAZOLAM [Concomitant]

REACTIONS (5)
  - Colitis ulcerative [Unknown]
  - Depression [Unknown]
  - Post-traumatic stress disorder [Unknown]
  - Gastrointestinal injury [Unknown]
  - Intestinal obstruction [Unknown]
